FAERS Safety Report 20827476 (Version 1)
Quarter: 2022Q2

REPORT INFORMATION
  Report Type: Spontaneous
  Country: US (occurrence: US)
  Receive Date: 20220513
  Receipt Date: 20220513
  Transmission Date: 20220721
  Serious: No
  Sender: FDA-Public Use
  Company Number: US-AMGEN-USASP2022076058

PATIENT
  Age: 79 Year
  Sex: Female

DRUGS (6)
  1. PROLIA [Suspect]
     Active Substance: DENOSUMAB
     Indication: Osteoporosis
     Dosage: UNK
     Route: 065
     Dates: start: 2019
  2. CORTISONE [Concomitant]
     Active Substance: CORTISONE
     Dosage: UNK UNK, UNK
     Route: 065
     Dates: start: 202202
  3. CORTISONE [Concomitant]
     Active Substance: CORTISONE
     Dosage: UNK UNK, UNK
     Route: 065
  4. HYALURONIC ACID [Concomitant]
     Active Substance: HYALURONIC ACID
     Dosage: UNK UNK, UNK
     Route: 065
     Dates: start: 20220412
  5. HYALURONIC ACID [Concomitant]
     Active Substance: HYALURONIC ACID
     Dosage: UNK UNK, UNK
     Route: 065
     Dates: start: 20220419
  6. COVID-19 vaccine [Concomitant]

REACTIONS (3)
  - Dental operation [Unknown]
  - COVID-19 [Unknown]
  - Pain in extremity [Unknown]

NARRATIVE: CASE EVENT DATE: 20220101
